FAERS Safety Report 23778283 (Version 1)
Quarter: 2024Q2

REPORT INFORMATION
  Report Type: Spontaneous
  Country: US (occurrence: None)
  Receive Date: 20240423
  Receipt Date: 20240423
  Transmission Date: 20240716
  Serious: No
  Sender: FDA-Public Use
  Company Number: None

PATIENT
  Sex: Female

DRUGS (8)
  1. KYPROLIS [Suspect]
     Active Substance: CARFILZOMIB
     Indication: Plasma cell myeloma
     Dosage: 36MG X 2 THEN 65MG DAY 1, + 2; D8,9,15,16  IV?
     Route: 042
     Dates: start: 202403
  2. KYPROLIS [Suspect]
     Active Substance: CARFILZOMIB
     Route: 042
  3. CYCLOPHOSPHAMIDE [Suspect]
     Active Substance: CYCLOPHOSPHAMIDE
     Indication: Plasma cell myeloma
     Dosage: 543MG DAY  1.8, 15 OF 28 IV?
     Route: 042
     Dates: start: 202403
  4. DEXAMETHASONE MDV [Concomitant]
  5. FAMOTIDINE [Concomitant]
     Active Substance: FAMOTIDINE
  6. DIPHENHYDRAMINE [Concomitant]
     Active Substance: DIPHENHYDRAMINE
  7. REVLIMID [Concomitant]
     Active Substance: LENALIDOMIDE
  8. DARZALEX SDV [Concomitant]

REACTIONS (1)
  - Plasma cell myeloma [None]
